FAERS Safety Report 26092199 (Version 1)
Quarter: 2025Q4

REPORT INFORMATION
  Report Type: Spontaneous
  Country: EU (occurrence: EU)
  Receive Date: 20251126
  Receipt Date: 20251126
  Transmission Date: 20260118
  Serious: Yes (Other)
  Sender: AMGEN
  Company Number: EU-AMGEN-POLSP2025230729

PATIENT

DRUGS (2)
  1. BEVACIZUMAB [Suspect]
     Active Substance: BEVACIZUMAB
     Indication: Ovarian epithelial cancer
     Dosage: UNK
     Route: 065
  2. OLAPARIB [Concomitant]
     Active Substance: OLAPARIB
     Indication: Ovarian epithelial cancer

REACTIONS (1)
  - Ovarian epithelial cancer [Unknown]
